FAERS Safety Report 10457511 (Version 1)
Quarter: 2014Q3

REPORT INFORMATION
  Report Type: Spontaneous
  Country: DE (occurrence: DE)
  Receive Date: 20140916
  Receipt Date: 20140916
  Transmission Date: 20150326
  Serious: Yes (Other)
  Sender: FDA-Public Use
  Company Number: DE-PFIZER INC-2014254363

PATIENT
  Sex: Male

DRUGS (1)
  1. CABASERIL [Suspect]
     Active Substance: CABERGOLINE
     Indication: PITUITARY TUMOUR
     Dosage: UNK

REACTIONS (2)
  - Drug dependence [None]
  - Dependence [Unknown]
